FAERS Safety Report 9346795 (Version 1)
Quarter: 2013Q2

REPORT INFORMATION
  Report Type: Report from Study
  Country: US (occurrence: US)
  Receive Date: 20130613
  Receipt Date: 20130613
  Transmission Date: 20140414
  Serious: Yes (Hospitalization, Other)
  Sender: FDA-Public Use
  Company Number: US-ROCHE-1233871

PATIENT
  Age: 68 Year
  Sex: Female
  Weight: 53.97 kg

DRUGS (8)
  1. RITUXIMAB [Suspect]
     Indication: CHRONIC LYMPHOCYTIC LEUKAEMIA
     Route: 042
     Dates: start: 20120319, end: 20120516
  2. GS-1101 [Suspect]
     Indication: CHRONIC LYMPHOCYTIC LEUKAEMIA
     Route: 048
     Dates: start: 20120319, end: 20120514
  3. CHLORAMBUCIL [Suspect]
     Indication: CHRONIC LYMPHOCYTIC LEUKAEMIA
     Route: 048
     Dates: start: 20120319, end: 20120429
  4. BACTRIM [Concomitant]
  5. ACYCLOVIR [Concomitant]
  6. ALLOPURINOL [Concomitant]
     Route: 065
     Dates: start: 20120319, end: 20120430
  7. IMODIUM [Concomitant]
     Route: 065
     Dates: start: 20120511
  8. COMPAZINE [Concomitant]
     Route: 065
     Dates: start: 20120319

REACTIONS (2)
  - Transaminases increased [Recovered/Resolved]
  - Colitis [Recovered/Resolved]
